FAERS Safety Report 9880907 (Version 2)
Quarter: 2014Q1

REPORT INFORMATION
  Report Type: Spontaneous
  Country: US (occurrence: None)
  Receive Date: 20140204
  Receipt Date: 20140225
  Transmission Date: 20141002
  Serious: Yes (Other)
  Sender: FDA-Public Use
  Company Number: 2014US002997

PATIENT
  Age: 66 Year
  Sex: Female
  Weight: 59 kg

DRUGS (14)
  1. PONATINIB [Suspect]
     Indication: CHRONIC MYELOID LEUKAEMIA
     Route: 048
     Dates: start: 20110401
  2. VALIUM (DIAZEPAM) [Concomitant]
  3. SYNTHROID (LEVOTHYROXINE SODIUM) [Concomitant]
  4. COZAAR (LOSARTAN POTASSIUM) [Concomitant]
  5. NORVASC (AMLODIPINE BESILATE) [Concomitant]
  6. ASPIRIN (ACETYLSALICYLIC ACID) [Concomitant]
  7. NEBIVOLOL [Concomitant]
  8. OMEGA (CONVALLARIA MAJALIS, CRATAEGUS LAEVIGATA, PROXYPHYLINE) [Concomitant]
  9. MULTIVITAMIN (VITAMINS NOS) [Concomitant]
  10. VITAMIN D3 [Concomitant]
  11. MIRALAX (MACROGOL) [Concomitant]
  12. BYSTOLIC (NEBIVOLOL HYDROCHLORIDE) [Concomitant]
  13. PLAVIX (CLOPIDOGREL BISULFATE) [Concomitant]
  14. CRESTOR [Concomitant]

REACTIONS (7)
  - Retinal vein occlusion [None]
  - Myocardial infarction [None]
  - Carotid artery stenosis [None]
  - Intermittent claudication [None]
  - Retinal haemorrhage [None]
  - Chronic myeloid leukaemia [None]
  - Condition aggravated [None]
